FAERS Safety Report 12558707 (Version 2)
Quarter: 2016Q3

REPORT INFORMATION
  Report Type: Spontaneous
  Country: GB (occurrence: GB)
  Receive Date: 20160715
  Receipt Date: 20160928
  Transmission Date: 20161109
  Serious: Yes (Hospitalization, Other)
  Sender: FDA-Public Use
  Company Number: GB-ROCHE-1790496

PATIENT
  Age: 29 Year
  Sex: Female

DRUGS (30)
  1. HERCEPTIN [Suspect]
     Active Substance: TRASTUZUMAB
     Route: 065
     Dates: start: 20130626
  2. PERJETA [Suspect]
     Active Substance: PERTUZUMAB
     Dosage: LOADING DOSE
     Route: 065
     Dates: start: 20140405
  3. DOCETAXOL [Concomitant]
     Active Substance: DOCETAXEL
     Route: 065
     Dates: start: 20130717
  4. CARBOPLATIN. [Concomitant]
     Active Substance: CARBOPLATIN
     Dosage: AUC 6
     Route: 065
     Dates: start: 20130717
  5. CARBOPLATIN. [Concomitant]
     Active Substance: CARBOPLATIN
     Dosage: AUC 6
     Route: 065
     Dates: start: 20130918
  6. LOPERAMIDE [Concomitant]
     Active Substance: LOPERAMIDE
  7. HERCEPTIN [Suspect]
     Active Substance: TRASTUZUMAB
     Route: 065
     Dates: start: 20130918
  8. PERJETA [Suspect]
     Active Substance: PERTUZUMAB
     Route: 065
     Dates: start: 20130626
  9. DOCETAXOL [Concomitant]
     Active Substance: DOCETAXEL
     Route: 065
     Dates: start: 20140405
  10. CARBOPLATIN. [Concomitant]
     Active Substance: CARBOPLATIN
     Dosage: AUC 6
     Route: 065
     Dates: start: 20140405
  11. TAZOCIN [Concomitant]
     Active Substance: PIPERACILLIN SODIUM\TAZOBACTAM SODIUM
     Route: 042
  12. PERJETA [Suspect]
     Active Substance: PERTUZUMAB
     Route: 065
     Dates: start: 20130717
  13. DOCETAXOL [Concomitant]
     Active Substance: DOCETAXEL
     Route: 065
     Dates: start: 20130626
  14. CARBOPLATIN. [Concomitant]
     Active Substance: CARBOPLATIN
     Dosage: AUC 6
     Route: 065
     Dates: start: 20130626
  15. NEULASTA [Concomitant]
     Active Substance: PEGFILGRASTIM
     Route: 065
     Dates: start: 20130807
  16. HERCEPTIN [Suspect]
     Active Substance: TRASTUZUMAB
     Dosage: LOADING DOSE
     Route: 065
     Dates: start: 20140405
  17. HERCEPTIN [Suspect]
     Active Substance: TRASTUZUMAB
     Route: 065
     Dates: start: 20130807
  18. PERJETA [Suspect]
     Active Substance: PERTUZUMAB
     Route: 065
     Dates: start: 20130918
  19. DOCETAXOL [Concomitant]
     Active Substance: DOCETAXEL
     Route: 065
  20. DOCETAXOL [Concomitant]
     Active Substance: DOCETAXEL
     Route: 065
     Dates: start: 20130807
  21. CARBOPLATIN. [Concomitant]
     Active Substance: CARBOPLATIN
     Dosage: AUC 6
     Route: 065
     Dates: start: 20130807
  22. DOCETAXOL [Concomitant]
     Active Substance: DOCETAXEL
     Route: 065
     Dates: start: 20130918
  23. HERCEPTIN [Suspect]
     Active Substance: TRASTUZUMAB
     Indication: PRODUCT USED FOR UNKNOWN INDICATION
     Route: 065
  24. PERJETA [Suspect]
     Active Substance: PERTUZUMAB
     Route: 065
     Dates: start: 20130807
  25. NEULASTA [Concomitant]
     Active Substance: PEGFILGRASTIM
     Route: 065
     Dates: start: 20130626
  26. NEULASTA [Concomitant]
     Active Substance: PEGFILGRASTIM
     Route: 065
     Dates: start: 20140405
  27. HERCEPTIN [Suspect]
     Active Substance: TRASTUZUMAB
     Route: 065
     Dates: start: 20130717
  28. PERJETA [Suspect]
     Active Substance: PERTUZUMAB
     Indication: PRODUCT USED FOR UNKNOWN INDICATION
     Route: 065
  29. NEULASTA [Concomitant]
     Active Substance: PEGFILGRASTIM
     Route: 065
     Dates: start: 20130717
  30. NEULASTA [Concomitant]
     Active Substance: PEGFILGRASTIM
     Route: 065
     Dates: start: 20130918

REACTIONS (9)
  - Alopecia [Unknown]
  - Body temperature increased [Unknown]
  - Diarrhoea [Unknown]
  - Ejection fraction decreased [Unknown]
  - Nausea [Unknown]
  - Rash [Unknown]
  - Nodule [Unknown]
  - Fatigue [Unknown]
  - Constipation [Unknown]
